FAERS Safety Report 7579078-2 (Version None)
Quarter: 2011Q2

REPORT INFORMATION
  Report Type: 
  Country: None (occurrence: None)
  Receive Date: 20110628
  Receipt Date: 20110617
  Transmission Date: 20111010
  Serious: Yes (Hospitalization)
  Sender: FDA-Public Use
  Company Number: US-NOVOPROD-322095

PATIENT
  Sex: Male
  Weight: 85.533 kg

DRUGS (1)
  1. LIRAGLUTIDE FLEXPEN [Suspect]
     Indication: TYPE 2 DIABETES MELLITUS
     Dosage: 0.6 MG, QD
     Route: 058
     Dates: start: 20101221, end: 20110118

REACTIONS (7)
  - HEAD INJURY [None]
  - DIARRHOEA [None]
  - FALL [None]
  - VOMITING [None]
  - SYNCOPE [None]
  - NAUSEA [None]
  - ORTHOSTATIC HYPOTENSION [None]
